FAERS Safety Report 7295865-2 (Version None)
Quarter: 2011Q1

REPORT INFORMATION
  Report Type: 
  Country: None (occurrence: None)
  Receive Date: 20110216
  Receipt Date: 20090206
  Transmission Date: 20110831
  Serious: Yes (Hospitalization, Other)
  Sender: FDA-Public Use
  Company Number: NO-AMGEN-UK313789

PATIENT
  Age: 67 Year
  Sex: Male

DRUGS (6)
  1. OXALIPLATIN [Suspect]
     Dosage: 750 MG, UNK
     Route: 042
     Dates: start: 20080515, end: 20080515
  2. NEULASTA [Suspect]
     Indication: CHEMOTHERAPY
     Dosage: 6 MG, UNK
     Route: 058
     Dates: start: 20080512, end: 20080517
  3. DEXAMETHASONE [Suspect]
     Dosage: 8 MG, UNK
     Route: 042
     Dates: start: 20080515, end: 20080516
  4. LEUCOVORIN CALCIUM [Concomitant]
     Dosage: 100 MG, UNK
     Route: 042
     Dates: start: 20080515, end: 20080516
  5. FLUOROURACIL [Concomitant]
     Dosage: 1050 MG, UNK
     Route: 042
     Dates: start: 20080515, end: 20080516
  6. ONDANSETRON [Concomitant]
     Dosage: 8 MG, UNK
     Route: 042
     Dates: start: 20080515, end: 20080518

REACTIONS (1)
  - PULMONARY EMBOLISM [None]
